FAERS Safety Report 9370553 (Version 2)
Quarter: 2013Q3

REPORT INFORMATION
  Report Type: Spontaneous
  Country: IT (occurrence: IT)
  Receive Date: 20130626
  Receipt Date: 20130726
  Transmission Date: 20140515
  Serious: Yes (Hospitalization, Other)
  Sender: FDA-Public Use
  Company Number: IT-MERCK-1306ITA012479

PATIENT
  Age: 63 Year
  Sex: Female

DRUGS (4)
  1. ESMERON [Suspect]
     Indication: ANAESTHESIA
     Dosage: UNK, ONCE
     Route: 042
     Dates: start: 20130613, end: 20130613
  2. PROPOFOL [Suspect]
     Indication: ANAESTHESIA
     Dosage: UNK, ONCE
     Route: 042
     Dates: start: 20130613, end: 20130613
  3. FENTANEST [Concomitant]
     Indication: ANTIBIOTIC PROPHYLAXIS
     Dosage: STRENGTH 0.1MG/2ML
     Dates: start: 20130613, end: 20130613
  4. CEFAMEZIN [Concomitant]
     Indication: ANTIBIOTIC PROPHYLAXIS
     Dosage: UNK, ONCE
     Route: 042
     Dates: start: 20130613, end: 20130613

REACTIONS (2)
  - Hypersensitivity [Recovered/Resolved]
  - Urticaria [Recovered/Resolved]
